FAERS Safety Report 4870603-9 (Version None)
Quarter: 2005Q4

REPORT INFORMATION
  Report Type: 
  Country: None (occurrence: None)
  Receive Date: 20051228
  Receipt Date: 20051219
  Transmission Date: 20060501
  Serious: Yes (Hospitalization)
  Sender: FDA-Public Use
  Company Number: 2005156488

PATIENT
  Age: 71 Year
  Sex: Male

DRUGS (3)
  1. CABERGOLINE [Suspect]
     Indication: PARKINSON'S DISEASE
     Dosage: 4 MG, ORAL
     Route: 048
     Dates: start: 19980101, end: 20050301
  2. LEVODOPA-CARBIDOPA (CARBIDOPA, LEVODOPA) [Concomitant]
  3. AMANTADINE HCL [Concomitant]

REACTIONS (5)
  - AORTIC VALVE INCOMPETENCE [None]
  - LEFT VENTRICULAR FAILURE [None]
  - MITRAL VALVE INCOMPETENCE [None]
  - PLEURAL EFFUSION [None]
  - TRICUSPID VALVE INCOMPETENCE [None]
